FAERS Safety Report 8491026-X (Version None)
Quarter: 2012Q3

REPORT INFORMATION
  Report Type: 
  Country: None (occurrence: None)
  Receive Date: 20120706
  Receipt Date: 20120628
  Transmission Date: 20120928
  Serious: Yes (Hospitalization, Disabling)
  Sender: FDA-Public Use
  Company Number: US-BAYER-2012-047438

PATIENT
  Age: 23 Year
  Sex: Female

DRUGS (2)
  1. YASMIN [Suspect]
     Dosage: 1 DF, QD
     Route: 048
     Dates: start: 20080201, end: 20081101
  2. DROSPIRENONE AND ETHINYL ESTRADIOL [Suspect]
     Dosage: UNK
     Dates: start: 20080201, end: 20081101

REACTIONS (7)
  - BLINDNESS [None]
  - RETINAL VASCULAR THROMBOSIS [None]
  - INJURY [None]
  - DEFORMITY [None]
  - PAIN [None]
  - ANXIETY [None]
  - ANHEDONIA [None]
